FAERS Safety Report 8183597-8 (Version None)
Quarter: 2012Q1

REPORT INFORMATION
  Report Type: 
  Country: None (occurrence: None)
  Receive Date: 20120305
  Receipt Date: 20120228
  Transmission Date: 20120608
  Serious: No
  Sender: FDA-Public Use
  Company Number: US-PFIZER INC-2012053330

PATIENT
  Sex: Female

DRUGS (5)
  1. REMERON [Concomitant]
     Indication: INSOMNIA
  2. REMERON [Concomitant]
     Indication: ANXIETY
  3. TRAZODONE [Concomitant]
     Indication: INSOMNIA
     Dosage: UNK
  4. REMERON [Concomitant]
     Indication: DEPRESSION
     Dosage: 45 MG, UNK
  5. CHANTIX [Suspect]
     Indication: SMOKING CESSATION THERAPY
     Dosage: UNK
     Route: 048
     Dates: start: 20090301, end: 20090101

REACTIONS (5)
  - ABDOMINAL DISCOMFORT [None]
  - AGITATION [None]
  - MALAISE [None]
  - VOMITING [None]
  - ASTHENIA [None]
